FAERS Safety Report 20334472 (Version 1)
Quarter: 2022Q1

REPORT INFORMATION
  Report Type: Spontaneous
  Country: US (occurrence: US)
  Receive Date: 20220114
  Receipt Date: 20220114
  Transmission Date: 20220423
  Serious: Yes (Death, Hospitalization, Other)
  Sender: FDA-Public Use
  Company Number: US-APOTEX-2022AP001955

PATIENT
  Age: 79 Year
  Sex: Male

DRUGS (1)
  1. TRANEXAMIC ACID [Suspect]
     Active Substance: TRANEXAMIC ACID
     Indication: Product used for unknown indication
     Dosage: UNK
     Route: 037

REACTIONS (10)
  - Wrong product administered [Fatal]
  - Seizure [Fatal]
  - Hypoxia [Fatal]
  - Brain oedema [Fatal]
  - Brain herniation [Fatal]
  - Arteriosclerosis coronary artery [Fatal]
  - Pneumonia [Fatal]
  - Aortic valve calcification [Fatal]
  - Cardiomegaly [Fatal]
  - Pyrexia [Fatal]

NARRATIVE: CASE EVENT DATE: 20200101
